FAERS Safety Report 22211883 (Version 4)
Quarter: 2023Q4

REPORT INFORMATION
  Report Type: Spontaneous
  Country: US (occurrence: US)
  Receive Date: 20230414
  Receipt Date: 20231016
  Transmission Date: 20240110
  Serious: Yes (Other)
  Sender: FDA-Public Use
  Company Number: US-PFIZER INC-PV202300007073

PATIENT
  Age: 69 Year
  Sex: Female

DRUGS (3)
  1. INLYTA [Suspect]
     Active Substance: AXITINIB
     Dosage: 3 MG, DAILY (TAKE 3 TABLETS (3 MG) BY MOUTH DAILY)
     Route: 048
  2. INLYTA [Suspect]
     Active Substance: AXITINIB
     Dosage: 1 MG
  3. INLYTA [Suspect]
     Active Substance: AXITINIB
     Dosage: 5 MG

REACTIONS (1)
  - Near death experience [Unknown]
